FAERS Safety Report 4871904-0 (Version None)
Quarter: 2006Q1

REPORT INFORMATION
  Report Type: 
  Country: None (occurrence: None)
  Receive Date: 20060104
  Receipt Date: 20051227
  Transmission Date: 20060701
  Serious: Yes (Hospitalization)
  Sender: FDA-Public Use
  Company Number: 2006PK00005

PATIENT
  Age: 22640 Day
  Sex: Female

DRUGS (1)
  1. SEROQUEL [Suspect]
     Indication: MANIA
     Route: 048
     Dates: start: 20051113, end: 20051113

REACTIONS (2)
  - CIRCULATORY COLLAPSE [None]
  - DELIRIUM [None]
